FAERS Safety Report 14999393 (Version 1)
Quarter: 2018Q2

REPORT INFORMATION
  Report Type: Spontaneous
  Country: US (occurrence: US)
  Receive Date: 20180522
  Receipt Date: 20180522
  Transmission Date: 20180711
  Serious: Yes (Disabling)
  Sender: FDA-Public Use
  Company Number: None

PATIENT
  Age: 5 Year
  Sex: Male
  Weight: 18.9 kg

DRUGS (5)
  1. MONTELUKAST [Suspect]
     Active Substance: MONTELUKAST SODIUM
     Indication: MULTIPLE ALLERGIES
     Dosage: ?          QUANTITY:30 DF DOSAGE FORM;?
     Route: 048
     Dates: start: 20150727, end: 20180315
  2. FLINTSTONE MULTIVITAMIN [Concomitant]
  3. PRO AIR INHALER [Concomitant]
  4. MONTELUKAST [Suspect]
     Active Substance: MONTELUKAST SODIUM
     Indication: ASTHMA
     Dosage: ?          QUANTITY:30 DF DOSAGE FORM;?
     Route: 048
     Dates: start: 20150727, end: 20180315
  5. CLARITIN [Concomitant]
     Active Substance: LORATADINE

REACTIONS (30)
  - Mood altered [None]
  - Memory impairment [None]
  - Sleep disorder [None]
  - Dysgraphia [None]
  - Therapy cessation [None]
  - Depression [None]
  - Apathy [None]
  - Enuresis [None]
  - Diarrhoea [None]
  - Abdominal discomfort [None]
  - Gastrointestinal disorder [None]
  - Morbid thoughts [None]
  - Educational problem [None]
  - Abnormal behaviour [None]
  - Self esteem decreased [None]
  - Agitation [None]
  - Aggression [None]
  - Family stress [None]
  - Screaming [None]
  - Intentional self-injury [None]
  - Scratch [None]
  - School refusal [None]
  - Bruxism [None]
  - Nightmare [None]
  - Disturbance in attention [None]
  - Psychomotor hyperactivity [None]
  - Restlessness [None]
  - Anxiety [None]
  - Tic [None]
  - Abdominal pain upper [None]

NARRATIVE: CASE EVENT DATE: 20180301
